FAERS Safety Report 5507659-6 (Version None)
Quarter: 2007Q4

REPORT INFORMATION
  Report Type: 
  Country: None (occurrence: None)
  Receive Date: 20071105
  Receipt Date: 20071105
  Transmission Date: 20080405
  Serious: Yes (Death, Life-Threatening, Hospitalization)
  Sender: FDA-Public Use
  Company Number: None

PATIENT
  Age: 25 Day
  Sex: Female
  Weight: 1.72 kg

DRUGS (8)
  1. NEOPROFEN [Suspect]
     Indication: PATENT DUCTUS ARTERIOSUS
     Dosage: 8 MG ONCE  -LOADING DOSE- IV BOLUS 4MG Q24H X 2 IV BOLUS
     Route: 040
     Dates: start: 20071017, end: 20071019
  2. AMPHOTERICIN B [Concomitant]
  3. SYNTHROID [Concomitant]
  4. NYSTATIN [Concomitant]
  5. TPN/FAT EMULSION [Concomitant]
  6. LASIX [Concomitant]
  7. MORPHINE [Concomitant]
  8. PHENOBARBITAL TAB [Concomitant]

REACTIONS (3)
  - NO THERAPEUTIC RESPONSE [None]
  - REFUSAL OF TREATMENT BY RELATIVE [None]
  - RENAL FAILURE [None]
